FAERS Safety Report 24884215 (Version 1)
Quarter: 2025Q1

REPORT INFORMATION
  Report Type: Spontaneous
  Country: NL (occurrence: NL)
  Receive Date: 20250124
  Receipt Date: 20250124
  Transmission Date: 20250409
  Serious: Yes (Hospitalization, Other)
  Sender: AMGEN
  Company Number: NL-AMGEN-NLDSP2025010001

PATIENT

DRUGS (2)
  1. ADALIMUMAB [Suspect]
     Active Substance: ADALIMUMAB
     Indication: Colitis ulcerative
     Route: 065
  2. ADALIMUMAB [Suspect]
     Active Substance: ADALIMUMAB
     Indication: Crohn^s disease

REACTIONS (16)
  - General physical health deterioration [Unknown]
  - Gastrointestinal anastomotic leak [Unknown]
  - Vascular device infection [Unknown]
  - Ileal stenosis [Unknown]
  - Crohn^s disease [Unknown]
  - Colitis ulcerative [Unknown]
  - Inflammatory bowel disease [Unknown]
  - Dermatomyositis [Unknown]
  - Anal abscess [Unknown]
  - Post procedural infection [Unknown]
  - Postoperative wound infection [Recovered/Resolved]
  - Abdominal abscess [Recovered/Resolved]
  - Urinary tract infection [Unknown]
  - Pyrexia [Unknown]
  - Pneumonia [Unknown]
  - Therapy non-responder [Unknown]
